FAERS Safety Report 9026237 (Version 1)
Quarter: 2012Q4

REPORT INFORMATION
  Report Type: Spontaneous
  Country: US (occurrence: None)
  Receive Date: 20121207
  Receipt Date: 20121207
  Transmission Date: 20130627
  Serious: Yes (Hospitalization)
  Sender: FDA-Public Use
  Company Number: UTC-026107

PATIENT
  Age: 60 Year
  Sex: Male

DRUGS (1)
  1. REMODULIN [Suspect]
     Indication: PRIMARY PULMONARY HYPERTENSION
     Dosage: 10.16 ug/kg (0.014 ug/kg, 1 in 1 min), Subcutaneous
     Route: 058
     Dates: start: 20121116

REACTIONS (2)
  - Dizziness [None]
  - Dyspnoea [None]
